FAERS Safety Report 15474529 (Version 1)
Quarter: 2018Q4

REPORT INFORMATION
  Report Type: Spontaneous
  Country: PT (occurrence: PT)
  Receive Date: 20181008
  Receipt Date: 20181008
  Transmission Date: 20190205
  Serious: Yes (Hospitalization, Other)
  Sender: FDA-Public Use
  Company Number: PT-GILEAD-2018-0366682

PATIENT
  Age: 71 Year
  Sex: Male

DRUGS (4)
  1. ZYDELIG [Suspect]
     Active Substance: IDELALISIB
     Indication: CHRONIC LYMPHOCYTIC LEUKAEMIA
     Dosage: 150 MG, UNK
     Route: 065
     Dates: start: 20180618, end: 2018
  2. ZYDELIG [Suspect]
     Active Substance: IDELALISIB
     Dosage: 150 MG, UNK
     Route: 065
     Dates: start: 20180903
  3. RITUXIMAB. [Suspect]
     Active Substance: RITUXIMAB
     Dosage: UNK
     Route: 065
     Dates: start: 20180903
  4. RITUXIMAB. [Suspect]
     Active Substance: RITUXIMAB
     Indication: CHRONIC LYMPHOCYTIC LEUKAEMIA
     Dosage: UNK
     Route: 065
     Dates: start: 20180618, end: 2018

REACTIONS (1)
  - Pseudomonas infection [Unknown]
